FAERS Safety Report 7552809-3 (Version None)
Quarter: 2011Q2

REPORT INFORMATION
  Report Type: 
  Country: None (occurrence: None)
  Receive Date: 20110616
  Receipt Date: 20110614
  Transmission Date: 20111010
  Serious: Yes (Death)
  Sender: FDA-Public Use
  Company Number: AU-PFIZER INC-2011130383

PATIENT
  Age: 71 Year
  Sex: Male

DRUGS (1)
  1. CYKLOKAPRON [Suspect]
     Dosage: 5 G
     Route: 042

REACTIONS (3)
  - DEATH [None]
  - ACCIDENTAL OVERDOSE [None]
  - DRUG ADMINISTRATION ERROR [None]
